FAERS Safety Report 25482064 (Version 1)
Quarter: 2025Q2

REPORT INFORMATION
  Report Type: Report from Study
  Country: CA (occurrence: CA)
  Receive Date: 20250626
  Receipt Date: 20250626
  Transmission Date: 20250716
  Serious: Yes (Other)
  Sender: CSL BEHRING
  Company Number: CA-BEH-2025209920

PATIENT
  Age: 62 Year
  Sex: Female
  Weight: 81.6 kg

DRUGS (1)
  1. HIZENTRA [Suspect]
     Active Substance: HUMAN IMMUNOGLOBULIN G
     Indication: Primary immunodeficiency syndrome
     Dosage: 14 G, QW
     Route: 058
     Dates: start: 20141016

REACTIONS (11)
  - Atrial fibrillation [Unknown]
  - Sinusitis [Unknown]
  - Weight increased [Unknown]
  - Head discomfort [Unknown]
  - Headache [Unknown]
  - Rhinorrhoea [Unknown]
  - Sinusitis [Unknown]
  - Sinusitis [Unknown]
  - Sinusitis [Recovered/Resolved]
  - Sinusitis [Recovered/Resolved]
  - Sinusitis [Recovered/Resolved]

NARRATIVE: CASE EVENT DATE: 20140101
